FAERS Safety Report 21847960 (Version 1)
Quarter: 2023Q1

REPORT INFORMATION
  Report Type: Spontaneous
  Country: AU (occurrence: None)
  Receive Date: 20230110
  Receipt Date: 20230110
  Transmission Date: 20230418
  Serious: Yes (Other)
  Sender: FDA-Public Use
  Company Number: None

PATIENT
  Age: 49 Year
  Sex: Female
  Weight: 75 kg

DRUGS (8)
  1. CELEBREX [Suspect]
     Active Substance: CELECOXIB
     Indication: Spinal pain
     Dosage: OTHER QUANTITY : 1 CAPSULE(S);?FREQUENCY : AS NEEDED;?
     Route: 048
  2. MOBIC [Suspect]
     Active Substance: MELOXICAM
     Indication: Intervertebral disc protrusion
     Dosage: OTHER QUANTITY : 1 CAPSULE(S);?FREQUENCY : AS NEEDED;?
     Route: 048
  3. ZOLOFT [Concomitant]
     Active Substance: SERTRALINE HYDROCHLORIDE
  4. Minodoxil [Concomitant]
  5. Spiractolone [Concomitant]
  6. LORATADINE [Concomitant]
     Active Substance: LORATADINE
  7. ZYRTEC [Concomitant]
     Active Substance: CETIRIZINE HYDROCHLORIDE
  8. FEXOFENADINE [Concomitant]
     Active Substance: FEXOFENADINE HYDROCHLORIDE

REACTIONS (5)
  - Inflammation [None]
  - Erythema [None]
  - Pruritus [None]
  - Blister [None]
  - Drug hypersensitivity [None]
